FAERS Safety Report 17840823 (Version 1)
Quarter: 2020Q2

REPORT INFORMATION
  Report Type: Spontaneous
  Country: DE (occurrence: DE)
  Receive Date: 20200529
  Receipt Date: 20200529
  Transmission Date: 20200714
  Serious: Yes (Other)
  Sender: FDA-Public Use
  Company Number: DE-TEVA-2020-DE-1240662

PATIENT
  Age: 78 Year
  Sex: Male
  Weight: 63 kg

DRUGS (1)
  1. LEVETIRACETAM. [Suspect]
     Active Substance: LEVETIRACETAM
     Indication: EPILEPSY
     Dosage: 1000 MG ONE TABLET
     Route: 048
     Dates: start: 20190803, end: 20190804

REACTIONS (6)
  - Dizziness [Recovered/Resolved]
  - Amnesia [Recovered/Resolved]
  - Renal failure [Recovered/Resolved]
  - Balance disorder [Recovered/Resolved]
  - Disturbance in attention [Recovered/Resolved]
  - Headache [Recovered/Resolved]

NARRATIVE: CASE EVENT DATE: 20190803
